FAERS Safety Report 8439771-6 (Version None)
Quarter: 2012Q2

REPORT INFORMATION
  Report Type: 
  Country: None (occurrence: None)
  Receive Date: 20120611
  Receipt Date: 20120611
  Transmission Date: 20120825
  Serious: Yes (Life-Threatening, Hospitalization, Disabling)
  Sender: FDA-Public Use
  Company Number: None

PATIENT
  Age: 28 Year
  Sex: Female
  Weight: 58.9676 kg

DRUGS (9)
  1. NALTREXONE ORAL [Concomitant]
  2. DEXTOX [Concomitant]
  3. LAMICTAL [Concomitant]
  4. GEODON [Concomitant]
  5. NEURONTIN [Concomitant]
  6. MIRENA [Concomitant]
  7. GABAPENTIN [Suspect]
  8. ZIPRASIDONE HCL [Suspect]
  9. ALDACTONE [Concomitant]

REACTIONS (1)
  - TOXICITY TO VARIOUS AGENTS [None]
